FAERS Safety Report 5365396-5 (Version None)
Quarter: 2007Q2

REPORT INFORMATION
  Report Type: 
  Country: None (occurrence: None)
  Receive Date: 20070621
  Receipt Date: 20070611
  Transmission Date: 20071010
  Serious: Yes (Hospitalization)
  Sender: FDA-Public Use
  Company Number: US-ELI_LILLY_AND_COMPANY-US200611002578

PATIENT
  Age: 64 Year
  Sex: Male

DRUGS (8)
  1. CIALIS [Suspect]
  2. SILDENAFIL CITRATE [Concomitant]
  3. DILTIAZEM [Concomitant]
  4. BISOPROLOL FUMARATE [Concomitant]
  5. HYDROCHLOROTHIAZIDE [Concomitant]
  6. FEXOFENADINE [Concomitant]
  7. ASPIRIN [Concomitant]
  8. SAW PALMETTO [Concomitant]

REACTIONS (2)
  - ATRIAL FIBRILLATION [None]
  - MIGRAINE WITH AURA [None]
